FAERS Safety Report 11326355 (Version 1)
Quarter: 2015Q3

REPORT INFORMATION
  Report Type: Spontaneous
  Country: US (occurrence: US)
  Receive Date: 20150731
  Receipt Date: 20150731
  Transmission Date: 20151125
  Serious: No
  Sender: FDA-Public Use
  Company Number: US-PFIZER INC-2015247607

PATIENT
  Age: 53 Year
  Sex: Male
  Weight: 86.17 kg

DRUGS (2)
  1. CYMBALTA [Concomitant]
     Active Substance: DULOXETINE HYDROCHLORIDE
     Indication: ANTIDEPRESSANT THERAPY
     Dosage: UNK
  2. LYRICA [Suspect]
     Active Substance: PREGABALIN
     Indication: LEG AMPUTATION
     Dosage: UNK(^60 MG^), 1X/DAY
     Route: 048

REACTIONS (6)
  - Depressed mood [Unknown]
  - Blood pressure fluctuation [Recovered/Resolved]
  - Blood pressure decreased [Recovered/Resolved]
  - Sexual dysfunction [Unknown]
  - Arthralgia [Unknown]
  - Feeling abnormal [Unknown]
